FAERS Safety Report 6933641-8 (Version None)
Quarter: 2010Q3

REPORT INFORMATION
  Report Type: 
  Country: None (occurrence: None)
  Receive Date: 20100820
  Receipt Date: 20100813
  Transmission Date: 20110219
  Serious: Yes (Other)
  Sender: FDA-Public Use
  Company Number: AU-ASTRAZENECA-2010SE38226

PATIENT
  Age: 30 Year
  Sex: Male

DRUGS (2)
  1. QUETIAPINE [Suspect]
     Indication: SLEEP DISORDER
     Dosage: 50 MG
     Route: 048
  2. SERTRALINE HYDROCHLORIDE [Suspect]
     Indication: MAJOR DEPRESSION
     Dosage: 200 MG

REACTIONS (1)
  - SEROTONIN SYNDROME [None]
